FAERS Safety Report 9237317 (Version 2)
Quarter: 2013Q2

REPORT INFORMATION
  Report Type: Spontaneous
  Country: CA (occurrence: CA)
  Receive Date: 20130417
  Receipt Date: 20130523
  Transmission Date: 20140414
  Serious: Yes (Hospitalization)
  Sender: FDA-Public Use
  Company Number: CA-ELI_LILLY_AND_COMPANY-CA201212006995

PATIENT
  Age: 80 Year
  Sex: Female
  Weight: 53.2 kg

DRUGS (10)
  1. FORTEO [Suspect]
     Indication: OSTEOPOROSIS
     Dosage: 20 UG, QD
     Route: 058
     Dates: start: 20120720
  2. VITAMIN C [Concomitant]
     Dosage: UNK, UNKNOWN
     Route: 065
  3. VITAMIN D [Concomitant]
     Dosage: UNK, UNKNOWN
     Route: 065
  4. VITAMIN E [Concomitant]
     Dosage: UNK, UNKNOWN
     Route: 065
  5. LORAZEPAM [Concomitant]
     Dosage: UNK, UNKNOWN
     Route: 065
  6. OMEPRAZOLE [Concomitant]
     Dosage: UNK, UNKNOWN
     Route: 065
  7. ADVAIR [Concomitant]
     Dosage: UNK, UNKNOWN
     Route: 065
  8. ATROVENT [Concomitant]
     Dosage: UNK, UNKNOWN
     Route: 065
  9. EVENING PRIMROSE OIL [Concomitant]
     Dosage: UNK, UNKNOWN
     Route: 065
  10. CALCIUM [Concomitant]
     Dosage: UNK, UNKNOWN
     Route: 065

REACTIONS (3)
  - Stress cardiomyopathy [Recovering/Resolving]
  - Hypertension [Recovering/Resolving]
  - Stress [Recovering/Resolving]
